FAERS Safety Report 16128215 (Version 1)
Quarter: 2019Q1

REPORT INFORMATION
  Report Type: Spontaneous
  Country: US (occurrence: US)
  Receive Date: 20190328
  Receipt Date: 20190328
  Transmission Date: 20190418
  Serious: No
  Sender: FDA-Public Use
  Company Number: US-SA-2019SA085737

PATIENT
  Age: 64 Year
  Sex: Female

DRUGS (7)
  1. BRILINTA [Concomitant]
     Active Substance: TICAGRELOR
  2. METOPROLOL. [Concomitant]
     Active Substance: METOPROLOL
  3. BABY ASPIRIN [Concomitant]
     Active Substance: ASPIRIN
  4. SYNTHROID [Concomitant]
     Active Substance: LEVOTHYROXINE SODIUM
  5. PRALUENT [Suspect]
     Active Substance: ALIROCUMAB
     Indication: BLOOD CHOLESTEROL
     Dosage: 75 MG, QOW
     Route: 058
     Dates: start: 2017
  6. VITAMINS NOS [Concomitant]
     Active Substance: VITAMINS
  7. PANTOPRAZOLE [Concomitant]
     Active Substance: PANTOPRAZOLE

REACTIONS (4)
  - Pruritus [Recovering/Resolving]
  - Contusion [Unknown]
  - Rhinorrhoea [Not Recovered/Not Resolved]
  - Paraesthesia [Recovered/Resolved]

NARRATIVE: CASE EVENT DATE: 2017
